FAERS Safety Report 21716340 (Version 1)
Quarter: 2022Q4

REPORT INFORMATION
  Report Type: Spontaneous
  Country: US (occurrence: US)
  Receive Date: 20221212
  Receipt Date: 20221212
  Transmission Date: 20230113
  Serious: No
  Sender: FDA-Public Use
  Company Number: US-GBT-014214

PATIENT
  Age: 19 Year
  Sex: Female

DRUGS (2)
  1. OXBRYTA [Suspect]
     Active Substance: VOXELOTOR
     Indication: Sickle cell disease
     Route: 048
  2. OXBRYTA [Suspect]
     Active Substance: VOXELOTOR
     Indication: Sickle cell disease
     Dosage: 2 TABLETS PER DAY
     Route: 048

REACTIONS (4)
  - Exposure during pregnancy [Unknown]
  - Intentional product use issue [Unknown]
  - Therapy cessation [Unknown]
  - Headache [Unknown]
